FAERS Safety Report 4519717-3 (Version None)
Quarter: 2004Q4

REPORT INFORMATION
  Report Type: 
  Country: None (occurrence: None)
  Receive Date: 20041206
  Receipt Date: 20041126
  Transmission Date: 20050328
  Serious: Yes (Hospitalization)
  Sender: FDA-Public Use
  Company Number: PHRM2004FR03459

PATIENT
  Age: 35 Year
  Sex: Male

DRUGS (3)
  1. HYDROCORTISONE [Concomitant]
     Indication: ADRENOCORTICAL INSUFFICIENCY CHRONIC
  2. FLUDROCORTISONE ACETATE TAB [Concomitant]
     Indication: ADRENOCORTICAL INSUFFICIENCY CHRONIC
  3. VOLTAREN [Suspect]
     Indication: JOINT INJECTION
     Route: 048
     Dates: start: 20040918, end: 20040919

REACTIONS (5)
  - BLOOD FIBRINOGEN INCREASED [None]
  - C-REACTIVE PROTEIN INCREASED [None]
  - INFLAMMATION [None]
  - PYREXIA [None]
  - RASH [None]
